FAERS Safety Report 7599402-4 (Version None)
Quarter: 2011Q4

REPORT INFORMATION
  Report Type: 
  Country: None (occurrence: None)
  Receive Date: 20110711
  Receipt Date: 20110301
  Transmission Date: 20120403
  Serious: Yes (Other)
  Sender: FDA-Public Use
  Company Number: BE-BAYER-2011-018748

PATIENT
  Age: 18 Year
  Sex: Female

DRUGS (1)
  1. YAZ [Suspect]

REACTIONS (4)
  - SPEECH DISORDER [None]
  - AMNESIA [None]
  - DISTURBANCE IN ATTENTION [None]
  - MIGRAINE [None]
